FAERS Safety Report 6004337-4 (Version None)
Quarter: 2008Q4

REPORT INFORMATION
  Report Type: 
  Country: None (occurrence: None)
  Receive Date: 20081216
  Receipt Date: 20081212
  Transmission Date: 20090506
  Serious: Yes (Hospitalization, Other)
  Sender: FDA-Public Use
  Company Number: IL-BAYER-200815458GPV

PATIENT
  Age: 69 Year
  Sex: Female
  Weight: 70 kg

DRUGS (6)
  1. VARDENAFIL 10 MG [Suspect]
     Indication: HYPERTONIC BLADDER
     Dosage: TOTAL DAILY DOSE: 20 MG
     Route: 048
     Dates: start: 20080219, end: 20080321
  2. BROTIZOLAM [Concomitant]
     Indication: SLEEP DISORDER
     Route: 048
     Dates: start: 20070101
  3. SIMVASTATIN [Concomitant]
     Indication: DYSLIPIDAEMIA
     Route: 048
     Dates: start: 20080101
  4. TOLTERODINE [Concomitant]
     Indication: INCONTINENCE
     Route: 048
     Dates: start: 20070101
  5. BENZODIAZEPINE [Concomitant]
     Indication: SLEEP DISORDER
     Route: 048
     Dates: start: 20070101
  6. CALCIUM CARBONATE [Concomitant]
     Indication: OSTEOPENIA
     Route: 065
     Dates: start: 20080301

REACTIONS (3)
  - DIZZINESS [None]
  - HEADACHE [None]
  - VISION BLURRED [None]
